FAERS Safety Report 9431126 (Version 1)
Quarter: 2013Q3

REPORT INFORMATION
  Report Type: Spontaneous
  Country: FR (occurrence: FR)
  Receive Date: 20130730
  Receipt Date: 20130730
  Transmission Date: 20140515
  Serious: Yes (Hospitalization)
  Sender: FDA-Public Use
  Company Number: FR-ASTRAZENECA-2013SE55989

PATIENT
  Age: 34083 Day
  Sex: Female

DRUGS (8)
  1. INEXIUM IV [Suspect]
     Indication: GASTRITIS PROPHYLAXIS
     Route: 042
     Dates: start: 20130621
  2. INEXIUM [Suspect]
     Indication: GASTRITIS PROPHYLAXIS
     Route: 048
     Dates: end: 20130626
  3. ASPEGIC [Suspect]
     Route: 042
     Dates: start: 20130621
  4. DISCOTRINE PATCH [Suspect]
     Indication: CARDIAC FAILURE
     Dosage: 5 MG / 24 HOURS
     Route: 062
     Dates: start: 20130621
  5. LASILIX [Concomitant]
     Indication: CARDIAC FAILURE
     Route: 042
  6. LASILIX [Concomitant]
     Indication: CARDIAC FAILURE
     Route: 048
  7. LEVOTHYROX [Concomitant]
     Indication: SECONDARY HYPOTHYROIDISM
     Route: 048
  8. CORDARONE [Concomitant]
     Indication: CARDIAC DISORDER
     Route: 048

REACTIONS (5)
  - Abnormal behaviour [Recovered/Resolved with Sequelae]
  - Incoherent [Recovered/Resolved with Sequelae]
  - Hallucination [Recovered/Resolved with Sequelae]
  - Agitation [Recovered/Resolved with Sequelae]
  - Confusional state [Recovered/Resolved with Sequelae]
